FAERS Safety Report 10419075 (Version 1)
Quarter: 2014Q3

REPORT INFORMATION
  Report Type: Spontaneous
  Country: US (occurrence: US)
  Receive Date: 20140829
  Receipt Date: 20140829
  Transmission Date: 20150326
  Serious: Yes (Other)
  Sender: FDA-Public Use
  Company Number: US-ABBVIE-14P-163-1274489-00

PATIENT

DRUGS (1)
  1. HUMIRA [Suspect]
     Active Substance: ADALIMUMAB
     Indication: PSORIATIC ARTHROPATHY
     Dates: start: 201402, end: 201407

REACTIONS (5)
  - Injection site pain [Unknown]
  - Eye haemorrhage [Unknown]
  - Blindness [Unknown]
  - Adverse drug reaction [Unknown]
  - Drug ineffective [Unknown]
